FAERS Safety Report 6981102-2 (Version None)
Quarter: 2010Q3

REPORT INFORMATION
  Report Type: 
  Country: None (occurrence: None)
  Receive Date: 20100914
  Receipt Date: 20100907
  Transmission Date: 20110219
  Serious: Yes (Hospitalization)
  Sender: FDA-Public Use
  Company Number: DE-MERCK-1009DEU00033

PATIENT
  Age: 58 Year
  Sex: Female

DRUGS (2)
  1. JANUMET [Suspect]
     Route: 048
     Dates: start: 20081201, end: 20090101
  2. AZATHIOPRINE [Concomitant]
     Indication: AUTOIMMUNE HEPATITIS
     Route: 065

REACTIONS (5)
  - DYSPHAGIA [None]
  - LUNG DISORDER [None]
  - LUNG NEOPLASM [None]
  - PULMONARY MASS [None]
  - WEIGHT DECREASED [None]
